FAERS Safety Report 18946442 (Version 1)
Quarter: 2021Q1

REPORT INFORMATION
  Report Type: Spontaneous
  Country: US (occurrence: US)
  Receive Date: 20210226
  Receipt Date: 20210226
  Transmission Date: 20210420
  Serious: Yes (Other)
  Sender: FDA-Public Use
  Company Number: US-PURDUE-USA-2020-0200701

PATIENT
  Sex: Male

DRUGS (1)
  1. TRAMADOL CR TABLETS (RHODES 21?745) [Suspect]
     Active Substance: TRAMADOL
     Indication: PRODUCT USED FOR UNKNOWN INDICATION
     Dosage: UNK
     Route: 048

REACTIONS (8)
  - Dizziness [Unknown]
  - Confusional state [Unknown]
  - Constipation [Unknown]
  - Respiratory depression [Unknown]
  - Vomiting [Unknown]
  - Drug dependence [Unknown]
  - Nausea [Unknown]
  - Somnolence [Unknown]
